FAERS Safety Report 4953180-3 (Version None)
Quarter: 2006Q1

REPORT INFORMATION
  Report Type: 
  Country: None (occurrence: None)
  Receive Date: 20060324
  Receipt Date: 20051205
  Transmission Date: 20060701
  Serious: Yes (Other)
  Sender: FDA-Public Use
  Company Number: US-MERCK-0512USA00822

PATIENT
  Age: 74 Year
  Sex: Female
  Weight: 72 kg

DRUGS (16)
  1. VIOXX [Suspect]
     Indication: OSTEOARTHRITIS
     Route: 048
     Dates: start: 20000101, end: 20030907
  2. EVISTA [Concomitant]
     Route: 065
  3. METRONIDAZOLE [Concomitant]
     Route: 065
  4. COVERA-HS [Concomitant]
     Route: 065
  5. NEURONTIN [Concomitant]
     Route: 065
  6. ZYRTEC [Concomitant]
     Route: 065
  7. VICODIN [Concomitant]
     Route: 065
  8. HYOSCYAMINE [Concomitant]
     Route: 065
  9. AMOXICILLIN [Concomitant]
     Route: 065
  10. DENAVIR [Concomitant]
     Route: 065
  11. Q-BID LA [Concomitant]
     Route: 065
  12. ACETAMINOPHEN AND PROPOXYPHENE NAPSYLATE [Concomitant]
     Route: 065
  13. HYDROCODONE BITARTRATE [Concomitant]
     Route: 065
  14. AMILORIDE [Concomitant]
     Route: 065
  15. VAGIFEM [Concomitant]
     Route: 065
  16. ARICEPT [Concomitant]
     Route: 065

REACTIONS (3)
  - ARTHROPATHY [None]
  - CEREBROVASCULAR ACCIDENT [None]
  - SPINAL DISORDER [None]
